FAERS Safety Report 6711209-6 (Version None)
Quarter: 2010Q2

REPORT INFORMATION
  Report Type: 
  Country: None (occurrence: None)
  Receive Date: 20100505
  Receipt Date: 20100427
  Transmission Date: 20101027
  Serious: Yes (Other)
  Sender: FDA-Public Use
  Company Number: GB-ASTRAZENECA-2010SE18690

PATIENT
  Age: 72 Year
  Sex: Male

DRUGS (5)
  1. ATENOLOL [Suspect]
     Indication: HYPERTENSION
     Route: 048
     Dates: start: 20100401, end: 20100412
  2. CANDESARTAN [Concomitant]
  3. AMLODIPINE [Concomitant]
  4. ATORVASTATIN [Concomitant]
  5. XAMIOL [Concomitant]

REACTIONS (2)
  - BRADYCARDIA [None]
  - PRODUCT SUBSTITUTION ISSUE [None]
